FAERS Safety Report 24839332 (Version 1)
Quarter: 2025Q1

REPORT INFORMATION
  Report Type: Spontaneous
  Country: TR (occurrence: TR)
  Receive Date: 20250114
  Receipt Date: 20250114
  Transmission Date: 20250409
  Serious: No
  Sender: ALKEM
  Company Number: TR-ALKEM LABORATORIES LIMITED-TR-ALKEM-2024-12745

PATIENT
  Age: 48 Year
  Sex: Female

DRUGS (2)
  1. CAPECITABINE [Suspect]
     Active Substance: CAPECITABINE
     Indication: Bone cancer
     Dosage: 1000 MILLIGRAM/SQ. METER, BID (14 DAYS, IN 21DAYS)
     Route: 048
  2. ZOLEDRONIC ACID [Suspect]
     Active Substance: ZOLEDRONIC ACID
     Indication: Bone cancer
     Route: 065

REACTIONS (2)
  - Hyperglycaemia [Recovered/Resolved]
  - Hypertriglyceridaemia [Recovered/Resolved]
